FAERS Safety Report 8225638-5 (Version None)
Quarter: 2012Q1

REPORT INFORMATION
  Report Type: 
  Country: None (occurrence: None)
  Receive Date: 20120321
  Receipt Date: 20120314
  Transmission Date: 20120608
  Serious: Yes (Hospitalization)
  Sender: FDA-Public Use
  Company Number: GR-B.I. PHARMACEUTICALS,INC./RIDGEFIELD-2012-EU-01506GB

PATIENT
  Age: 65 Year
  Sex: Female

DRUGS (4)
  1. KEPPRA [Concomitant]
     Indication: EPILEPSY
  2. PRADAXA [Suspect]
     Indication: ATRIAL FIBRILLATION
     Dosage: 220 MG
     Route: 048
     Dates: start: 20110601
  3. DEPAKENE [Concomitant]
     Indication: EPILEPSY
  4. CORTISONE ACETATE [Concomitant]
     Indication: ARTHRITIS

REACTIONS (1)
  - ISCHAEMIC STROKE [None]
